FAERS Safety Report 25381222 (Version 2)
Quarter: 2025Q2

REPORT INFORMATION
  Report Type: Report from Study
  Country: US (occurrence: US)
  Receive Date: 20250530
  Receipt Date: 20250620
  Transmission Date: 20250717
  Serious: Yes (Other)
  Sender: BAYER HEALTHCARE PHARMACEUTICALS INC.
  Company Number: US-BAYER-2025A072571

PATIENT
  Age: 71 Year
  Sex: Male

DRUGS (12)
  1. NUBEQA [Suspect]
     Active Substance: DAROLUTAMIDE
     Indication: Prostate cancer
     Dosage: 600 MG, BID
     Route: 048
     Dates: start: 20250425
  2. CALCIUM [Concomitant]
     Active Substance: CALCIUM
  3. CLOBETASOL PROPIONATE [Concomitant]
     Active Substance: CLOBETASOL PROPIONATE
  4. COSENTYX [Concomitant]
     Active Substance: SECUKINUMAB
  5. DESONIDE [Concomitant]
     Active Substance: DESONIDE
  6. VITAMIN D3 [Concomitant]
     Active Substance: CHOLECALCIFEROL
  7. FLUCONAZOLE [Concomitant]
     Active Substance: FLUCONAZOLE
  8. KETOCONAZOLE [Concomitant]
     Active Substance: KETOCONAZOLE
  9. PROLIA [Concomitant]
     Active Substance: DENOSUMAB
  10. SILDENAFIL [Concomitant]
     Active Substance: SILDENAFIL
  11. TADALAFIL [Concomitant]
     Active Substance: TADALAFIL
  12. TRELSTAR [Concomitant]
     Active Substance: TRIPTORELIN PAMOATE

REACTIONS (2)
  - Dyspnoea [Not Recovered/Not Resolved]
  - Decreased appetite [Not Recovered/Not Resolved]

NARRATIVE: CASE EVENT DATE: 20250101
